FAERS Safety Report 15566137 (Version 1)
Quarter: 2018Q4

REPORT INFORMATION
  Report Type: Spontaneous
  Country: US (occurrence: US)
  Receive Date: 20181030
  Receipt Date: 20181030
  Transmission Date: 20190205
  Serious: No
  Sender: FDA-Public Use
  Company Number: US-NOVOPROD-593225

PATIENT
  Age: 58 Year
  Sex: Female
  Weight: 58.6 kg

DRUGS (7)
  1. VAGIFEM LD [Suspect]
     Active Substance: ESTRADIOL
     Indication: ATROPHIC VULVOVAGINITIS
     Dosage: 10 ?G, QD
     Route: 067
     Dates: start: 20170109, end: 20170122
  2. ESTRACE [Suspect]
     Active Substance: ESTRADIOL
     Indication: ATROPHIC VULVOVAGINITIS
     Dosage: 0.5 GM OR 1 GM QD
     Route: 061
     Dates: start: 20160308, end: 20160321
  3. VAGIFEM LD [Suspect]
     Active Substance: ESTRADIOL
     Dosage: 10 ?G, BIW
     Route: 067
     Dates: start: 20170123
  4. ESTRACE [Suspect]
     Active Substance: ESTRADIOL
     Dosage: 0.5 GM OR 1 GM TWICE A WEEK
     Route: 061
     Dates: start: 20160322
  5. ASPIRIN                            /00002701/ [Concomitant]
     Active Substance: ASPIRIN
     Indication: PRODUCT USED FOR UNKNOWN INDICATION
     Dosage: 81 MG, UNK
     Route: 048
  6. VITAMIN D                          /00107901/ [Concomitant]
     Active Substance: ERGOCALCIFEROL
     Indication: PRODUCT USED FOR UNKNOWN INDICATION
     Dosage: UNK
     Route: 048
  7. CALCIUM [Concomitant]
     Active Substance: CALCIUM
     Indication: PRODUCT USED FOR UNKNOWN INDICATION
     Dosage: UNK
     Route: 048

REACTIONS (2)
  - Rash generalised [Recovered/Resolved]
  - Pruritus generalised [Recovered/Resolved]
